FAERS Safety Report 24689685 (Version 2)
Quarter: 2025Q3

REPORT INFORMATION
  Report Type: Report from Study
  Country: CA (occurrence: CA)
  Receive Date: 20241203
  Receipt Date: 20250809
  Transmission Date: 20251021
  Serious: Yes (Death, Other)
  Sender: ALEXION PHARMACEUTICALS
  Company Number: CA-AstraZeneca-CH-00757963A

PATIENT
  Age: 78 Year
  Sex: Male

DRUGS (5)
  1. OSIMERTINIB [Suspect]
     Active Substance: OSIMERTINIB
     Indication: Non-small cell lung cancer metastatic
     Dosage: 40 MILLIGRAM, QD
     Dates: start: 20231113, end: 20240812
  2. SIMVASTATIN [Concomitant]
     Active Substance: SIMVASTATIN
     Route: 065
  3. ADALAT [Concomitant]
     Active Substance: NIFEDIPINE
     Route: 065
  4. TYLENOL [Concomitant]
     Active Substance: ACETAMINOPHEN
     Route: 065
  5. Metholol [Concomitant]

REACTIONS (2)
  - Death [Fatal]
  - Inflammation [Unknown]

NARRATIVE: CASE EVENT DATE: 20240812
